FAERS Safety Report 14909914 (Version 2)
Quarter: 2018Q2

REPORT INFORMATION
  Report Type: Report from Study
  Country: AU (occurrence: AU)
  Receive Date: 20180517
  Receipt Date: 20180608
  Transmission Date: 20180711
  Serious: Yes (Other)
  Sender: FDA-Public Use
  Company Number: AU-MYLANLABS-2018M1032630

PATIENT
  Sex: Female

DRUGS (14)
  1. LAMOTRIGINE. [Suspect]
     Active Substance: LAMOTRIGINE
     Indication: BIPOLAR II DISORDER
     Dosage: LOW-DOSE
     Route: 065
  2. VENLAFAXINE [Suspect]
     Active Substance: VENLAFAXINE HYDROCHLORIDE
     Route: 065
  3. REBOXETINE [Concomitant]
     Active Substance: REBOXETINE
     Indication: MAJOR DEPRESSION
     Route: 065
  4. SERTRALINE [Suspect]
     Active Substance: SERTRALINE HYDROCHLORIDE
     Indication: MAJOR DEPRESSION
     Dosage: LOW-DOSE
     Route: 065
  5. VALPROIC ACID. [Suspect]
     Active Substance: VALPROIC ACID
     Indication: BIPOLAR II DISORDER
     Route: 065
  6. FLUOXETINE [Suspect]
     Active Substance: FLUOXETINE HYDROCHLORIDE
     Indication: BIPOLAR II DISORDER
     Dosage: 5 MG,QD, LOW-DOSE
     Route: 065
  7. MIRTAZAPINE. [Suspect]
     Active Substance: MIRTAZAPINE
     Indication: MAJOR DEPRESSION
     Dosage: 15 MG, QD
     Route: 065
  8. METHYLPHENIDATE. [Concomitant]
     Active Substance: METHYLPHENIDATE
     Indication: MAJOR DEPRESSION
     Route: 065
  9. CODEINE [Concomitant]
     Active Substance: CODEINE
     Indication: ANALGESIC THERAPY
     Dosage: LOW-DOSE
     Route: 065
  10. LITHIUM. [Suspect]
     Active Substance: LITHIUM
     Indication: BIPOLAR II DISORDER
     Dosage: INITIAL DOSE NOT STATED
     Route: 065
  11. VENLAFAXINE [Suspect]
     Active Substance: VENLAFAXINE HYDROCHLORIDE
     Indication: MAJOR DEPRESSION
     Dosage: INITIAL DOSE NOT STATED
     Route: 065
  12. MOCLOBEMIDE [Concomitant]
     Active Substance: MOCLOBEMIDE
     Indication: MAJOR DEPRESSION
     Route: 065
  13. LITHIUM. [Suspect]
     Active Substance: LITHIUM
     Dosage: 625 MG, QD
     Route: 065
  14. TRANYLCYPROMINE [Suspect]
     Active Substance: TRANYLCYPROMINE
     Indication: MAJOR DEPRESSION
     Route: 065

REACTIONS (12)
  - Sinusitis [Recovering/Resolving]
  - Drug intolerance [Unknown]
  - Memory impairment [Unknown]
  - Fatigue [Recovered/Resolved]
  - Panic attack [Unknown]
  - Alopecia [Unknown]
  - Hyperacusis [Unknown]
  - Agitation [Unknown]
  - Tic [Unknown]
  - Creatinine renal clearance abnormal [Recovered/Resolved]
  - Nephrogenic diabetes insipidus [Recovering/Resolving]
  - Vertigo [Unknown]
